FAERS Safety Report 6188561-6 (Version None)
Quarter: 2009Q2

REPORT INFORMATION
  Report Type: 
  Country: None (occurrence: None)
  Receive Date: 20090513
  Receipt Date: 20090429
  Transmission Date: 20091009
  Serious: Yes (Other)
  Sender: FDA-Public Use
  Company Number: US-ROCHE-621193

PATIENT
  Sex: Male

DRUGS (2)
  1. TAMIFLU [Suspect]
     Dosage: FOR 5 DAYS
     Route: 048
     Dates: start: 20090209, end: 20090209
  2. TYLENOL [Concomitant]

REACTIONS (7)
  - AGGRESSION [None]
  - AGITATION [None]
  - COMMUNICATION DISORDER [None]
  - CONVULSION [None]
  - DISORIENTATION [None]
  - DYSKINESIA [None]
  - PYREXIA [None]
